FAERS Safety Report 7340183-7 (Version None)
Quarter: 2011Q1

REPORT INFORMATION
  Report Type: 
  Country: None (occurrence: None)
  Receive Date: 20110309
  Receipt Date: 20110307
  Transmission Date: 20110831
  Serious: Yes (Other)
  Sender: FDA-Public Use
  Company Number: US-ABBOTT-11P-163-0704166-00

PATIENT
  Sex: Female
  Weight: 81.72 kg

DRUGS (2)
  1. HUMIRA [Suspect]
     Indication: CROHN'S DISEASE
     Route: 058
     Dates: start: 20101014
  2. NEURONTIN [Concomitant]
     Indication: NEUROPATHY PERIPHERAL
     Dosage: UNKNOWN STRENGTH
     Route: 048

REACTIONS (6)
  - IRON DEFICIENCY [None]
  - FATIGUE [None]
  - HEADACHE [None]
  - TINNITUS [None]
  - EYE IRRITATION [None]
  - BONE PAIN [None]
